FAERS Safety Report 20947785 (Version 2)
Quarter: 2022Q3

REPORT INFORMATION
  Report Type: Spontaneous
  Country: FR (occurrence: FR)
  Receive Date: 20220611
  Receipt Date: 20220708
  Transmission Date: 20221027
  Serious: Yes (Life-Threatening)
  Sender: FDA-Public Use
  Company Number: None

PATIENT
  Age: 68 Year
  Sex: Male
  Weight: 83.5 kg

DRUGS (10)
  1. LANSOPRAZOLE [Suspect]
     Active Substance: LANSOPRAZOLE
     Indication: Product used for unknown indication
     Dosage: UNIT DOSE : 15 MG, FREQUENCY TIME : 1 DAYS, THERAPY DURATION : 4  DAYS
     Route: 048
     Dates: start: 20220505, end: 20220509
  2. ATORVASTATIN [Suspect]
     Active Substance: ATORVASTATIN
     Indication: Cardiovascular event prophylaxis
     Dosage: UNIT DOSE : 20  MG, FREQUENCY TIME : 1 DAYS, THERAPY DURATION : 4  DAYS
     Route: 048
     Dates: start: 20220505, end: 20220509
  3. VISIPAQUE [Suspect]
     Active Substance: IODIXANOL
     Indication: Computerised tomogram
     Dosage: THERAPY DURATION : 1  DAYS
     Route: 042
     Dates: start: 20220505, end: 20220505
  4. HEPARIN SODIUM [Suspect]
     Active Substance: HEPARIN SODIUM
     Indication: Thrombosis
     Dosage: THERAPY DURATION : 7 DAYS
     Route: 042
     Dates: start: 20220503, end: 20220510
  5. ACETYLLEUCINE, L- [Suspect]
     Active Substance: ACETYLLEUCINE, L-
     Indication: Product used for unknown indication
     Dosage: UNIT DOSE : 1 GRAM, FREQUENCY TIME : 1 DAYS, THERAPY DURATION : 3 DAYS
     Route: 042
     Dates: start: 20220503, end: 20220506
  6. AMITRIPTYLINE [Suspect]
     Active Substance: AMITRIPTYLINE
     Indication: Product used for unknown indication
     Dosage: UNIT STRENGTH: 40 MG/ML, UNIT DOSE :  5 MG , FREQUENCY TIME : 1 DAYS,  THERAPY DURATION : 4  DAYS
     Route: 048
     Dates: start: 20220505, end: 20220509
  7. LERCANIDIPINE HYDROCHLORIDE [Concomitant]
     Active Substance: LERCANIDIPINE HYDROCHLORIDE
     Indication: Product used for unknown indication
     Dosage: THERAPY DURATION :11  DAYS
     Route: 048
     Dates: start: 20220422, end: 20220503
  8. KARDEGIC [Concomitant]
     Active Substance: ASPIRIN DL-LYSINE
     Indication: Product used for unknown indication
     Dosage: UNIT DOSE AND UNIT STRENGTH : 75 MG,FREQUENCY TIME : 1 DAYS
     Route: 048
     Dates: start: 20220503
  9. METOCLOPRAMIDE [Concomitant]
     Active Substance: METOCLOPRAMIDE
     Indication: Product used for unknown indication
     Dosage: UNIT DOSE :  5 MG, FREQUENCY TIME : 1 DAYS,  THERAPY DURATION : 1 DAYS
     Route: 048
     Dates: start: 20220503, end: 20220503
  10. ACETAMINOPHEN [Concomitant]
     Active Substance: ACETAMINOPHEN
     Indication: Product used for unknown indication
     Dosage: THERAPY DURATION : 6  DAYS
     Route: 048
     Dates: start: 20220504, end: 20220510

REACTIONS (1)
  - Acute generalised exanthematous pustulosis [Recovering/Resolving]

NARRATIVE: CASE EVENT DATE: 20220509
